FAERS Safety Report 23345947 (Version 5)
Quarter: 2025Q2

REPORT INFORMATION
  Report Type: Report from Study
  Country: CA (occurrence: CA)
  Receive Date: 20231228
  Receipt Date: 20250514
  Transmission Date: 20250717
  Serious: Yes (Other)
  Sender: TAKEDA
  Company Number: CA-TAKEDA-2023TUS123665

PATIENT
  Age: 68 Year
  Sex: Female

DRUGS (10)
  1. VEDOLIZUMAB [Suspect]
     Active Substance: VEDOLIZUMAB
     Indication: Colitis ulcerative
  2. VEDOLIZUMAB [Suspect]
     Active Substance: VEDOLIZUMAB
     Dosage: 300 MILLIGRAM, Q4WEEKS
     Dates: start: 20231228
  3. VEDOLIZUMAB [Suspect]
     Active Substance: VEDOLIZUMAB
     Dosage: 300 MILLIGRAM, Q4WEEKS
  4. VEDOLIZUMAB [Suspect]
     Active Substance: VEDOLIZUMAB
     Dosage: 300 MILLIGRAM, Q4WEEKS
  5. VEDOLIZUMAB [Suspect]
     Active Substance: VEDOLIZUMAB
     Dosage: 300 MILLIGRAM, Q4WEEKS
  6. MESALAMINE [Concomitant]
     Active Substance: MESALAMINE
  7. METHOTREXATE [Concomitant]
     Active Substance: METHOTREXATE
  8. SYNTHROID [Concomitant]
     Active Substance: LEVOTHYROXINE SODIUM
  9. IRBESARTAN [Concomitant]
     Active Substance: IRBESARTAN
  10. HYDROCHLOROTHIAZIDE [Concomitant]
     Active Substance: HYDROCHLOROTHIAZIDE

REACTIONS (8)
  - Colitis ulcerative [Unknown]
  - Off label use [Unknown]
  - Rotator cuff syndrome [Not Recovered/Not Resolved]
  - Fall [Unknown]
  - Head injury [Unknown]
  - Scratch [Unknown]
  - Musculoskeletal stiffness [Unknown]
  - Arthralgia [Unknown]

NARRATIVE: CASE EVENT DATE: 20231215
